FAERS Safety Report 14621127 (Version 1)
Quarter: 2018Q1

REPORT INFORMATION
  Report Type: Spontaneous
  Country: CZ (occurrence: CZ)
  Receive Date: 20180310
  Receipt Date: 20180310
  Transmission Date: 20180509
  Serious: Yes (Other)
  Sender: FDA-Public Use
  Company Number: CZ-ROCHE-2086403

PATIENT
  Age: 49 Year
  Sex: Male
  Weight: 91 kg

DRUGS (1)
  1. MABTHERA [Suspect]
     Active Substance: RITUXIMAB
     Indication: RHEUMATOID ARTHRITIS
     Dosage: LAST DOSE WAS ADMINISTERED ON 26/JUL/2016
     Route: 042
     Dates: start: 20160708

REACTIONS (1)
  - Diverticulum intestinal [Unknown]

NARRATIVE: CASE EVENT DATE: 20160930
